FAERS Safety Report 4621613-8 (Version None)
Quarter: 2005Q1

REPORT INFORMATION
  Report Type: 
  Country: None (occurrence: None)
  Receive Date: 20050328
  Receipt Date: 20050314
  Transmission Date: 20050727
  Serious: Yes (Other)
  Sender: FDA-Public Use
  Company Number: 2005045412

PATIENT
  Sex: Female
  Weight: 86.637 kg

DRUGS (2)
  1. NEURONTIN [Suspect]
     Indication: ARTHRITIS
     Dosage: 100 MG UP TO 3 CAPSULES (3 IN 1 D), ORAL
     Route: 048
  2. NEURONTIN [Suspect]
     Indication: INTERVERTEBRAL DISC DISORDER
     Dosage: 100 MG UP TO 3 CAPSULES (3 IN 1 D), ORAL
     Route: 048

REACTIONS (10)
  - ABDOMINAL PAIN UPPER [None]
  - ALOPECIA [None]
  - BACK PAIN [None]
  - DYSGEUSIA [None]
  - MUSCLE SPASMS [None]
  - RENAL DISORDER [None]
  - RENAL PAIN [None]
  - SKIN DISORDER [None]
  - SWELLING [None]
  - TOOTH DISORDER [None]
